FAERS Safety Report 15743923 (Version 1)
Quarter: 2018Q4

REPORT INFORMATION
  Report Type: Spontaneous
  Country: US (occurrence: US)
  Receive Date: 20181204
  Receipt Date: 20181204
  Transmission Date: 20190205
  Serious: Yes (Hospitalization)
  Sender: FDA-Public Use
  Company Number: None

PATIENT
  Age: 71 Year
  Sex: Female

DRUGS (1)
  1. OCTREOTIDE PFS 100MCG/ML [Suspect]
     Active Substance: OCTREOTIDE ACETATE
     Route: 058
     Dates: start: 20180413

REACTIONS (5)
  - Diarrhoea [None]
  - Dehydration [None]
  - Inappropriate schedule of product administration [None]
  - Economic problem [None]
  - Underdose [None]

NARRATIVE: CASE EVENT DATE: 20181128
